FAERS Safety Report 10250166 (Version 1)
Quarter: 2014Q2

REPORT INFORMATION
  Report Type: Spontaneous
  Country: US (occurrence: US)
  Receive Date: 20140620
  Receipt Date: 20140620
  Transmission Date: 20141212
  Serious: No
  Sender: FDA-Public Use
  Company Number: US-BRISTOL-MYERS SQUIBB COMPANY-20721049

PATIENT
  Age: 79 Year
  Sex: Female

DRUGS (1)
  1. ELIQUIS [Suspect]

REACTIONS (7)
  - Dyspnoea [Unknown]
  - Dry mouth [Unknown]
  - Epistaxis [Unknown]
  - Joint swelling [Unknown]
  - Chromaturia [Unknown]
  - Dizziness [Unknown]
  - Ulcer haemorrhage [Unknown]
